FAERS Safety Report 20966021 (Version 1)
Quarter: 2022Q2

REPORT INFORMATION
  Report Type: Spontaneous
  Country: IT (occurrence: IT)
  Receive Date: 20220616
  Receipt Date: 20220616
  Transmission Date: 20220721
  Serious: Yes (Hospitalization, Other)
  Sender: FDA-Public Use
  Company Number: IT-AMGEN-ITASP2022100865

PATIENT

DRUGS (7)
  1. BEVACIZUMAB [Suspect]
     Active Substance: BEVACIZUMAB
     Indication: Product used for unknown indication
     Dosage: UNK
     Route: 065
  2. FLUOROURACIL\LEUCOVORIN CALCIUM\OXALIPLATIN [Concomitant]
     Active Substance: FLUOROURACIL\LEUCOVORIN CALCIUM\OXALIPLATIN
  3. CAPECITABINE [Concomitant]
     Active Substance: CAPECITABINE
  4. FOLIC ACID [Concomitant]
     Active Substance: FOLIC ACID
  5. FLUOROURACIL [Concomitant]
     Active Substance: FLUOROURACIL
  6. AFLIBERCEPT [Concomitant]
     Active Substance: AFLIBERCEPT
  7. FLUOROURACIL\IRINOTECAN\LEUCOVORIN [Concomitant]
     Active Substance: FLUOROURACIL\IRINOTECAN\LEUCOVORIN

REACTIONS (6)
  - Inflammatory marker increased [Unknown]
  - C-reactive protein increased [Unknown]
  - Metastases to peritoneum [Unknown]
  - Procedural haemorrhage [Unknown]
  - Biliary fistula [Unknown]
  - Off label use [Unknown]
